FAERS Safety Report 10464453 (Version 2)
Quarter: 2014Q4

REPORT INFORMATION
  Report Type: Report from Study
  Country: US (occurrence: US)
  Receive Date: 20140919
  Receipt Date: 20141201
  Transmission Date: 20150528
  Serious: Yes (Hospitalization, Other)
  Sender: FDA-Public Use
  Company Number: US-BAXTER-2014BAX055528

PATIENT
  Age: 28 Year
  Sex: Female

DRUGS (2)
  1. OCTAGAM IMMUNE GLOBULIN (HUMAN) [Suspect]
     Active Substance: HUMAN IMMUNOGLOBULIN G
     Indication: PRODUCT USED FOR UNKNOWN INDICATION
     Route: 042
  2. GAMMAGARD LIQUID [Suspect]
     Active Substance: HUMAN IMMUNOGLOBULIN G
     Indication: PRODUCT USED FOR UNKNOWN INDICATION
     Route: 042

REACTIONS (12)
  - Feeling abnormal [Unknown]
  - Addison^s disease [Unknown]
  - Shunt infection [Unknown]
  - Road traffic accident [Recovered/Resolved]
  - Meningitis viral [Not Recovered/Not Resolved]
  - Antiphospholipid syndrome [Unknown]
  - Meningitis bacterial [Not Recovered/Not Resolved]
  - Device related infection [Unknown]
  - Cerebrospinal fluid leakage [Unknown]
  - Sepsis [Not Recovered/Not Resolved]
  - Device related infection [Not Recovered/Not Resolved]
  - Head injury [Not Recovered/Not Resolved]

NARRATIVE: CASE EVENT DATE: 201409
